FAERS Safety Report 10723552 (Version 1)
Quarter: 2015Q1

REPORT INFORMATION
  Report Type: Report from Study
  Country: TN (occurrence: TN)
  Receive Date: 20150120
  Receipt Date: 20150120
  Transmission Date: 20150721
  Serious: Yes (Death)
  Sender: FDA-Public Use
  Company Number: TN-SA-2015SA004592

PATIENT
  Age: 73 Year
  Sex: Male

DRUGS (5)
  1. HYPOTEN [Concomitant]
     Route: 048
     Dates: end: 201501
  2. PLAVIX [Suspect]
     Active Substance: CLOPIDOGREL BISULFATE
     Indication: MYOCARDIAL INFARCTION
     Route: 048
     Dates: start: 20141230, end: 20150113
  3. ASPIRIN. [Concomitant]
     Active Substance: ASPIRIN
     Route: 048
     Dates: end: 201501
  4. TRIATEC [Concomitant]
     Active Substance: RAMIPRIL
     Route: 048
     Dates: end: 201501
  5. ROSUVASTATIN [Concomitant]
     Active Substance: ROSUVASTATIN
     Route: 048
     Dates: end: 201501

REACTIONS (3)
  - Myocardial infarction [Fatal]
  - Cardiac arrest [Fatal]
  - Chest pain [Fatal]

NARRATIVE: CASE EVENT DATE: 20150108
